FAERS Safety Report 8050434-1 (Version None)
Quarter: 2012Q1

REPORT INFORMATION
  Report Type: 
  Country: None (occurrence: None)
  Receive Date: 20120117
  Receipt Date: 20120113
  Transmission Date: 20120608
  Serious: Yes (Death)
  Sender: FDA-Public Use
  Company Number: US-B.I. PHARMACEUTICALS,INC./RIDGEFIELD-2012-BP-00805BP

PATIENT
  Age: 84 Year
  Sex: Male

DRUGS (11)
  1. LISINOPRIL [Concomitant]
     Dosage: 10 MG
     Route: 048
  2. CYPROHEPTADINE HCL [Concomitant]
  3. METAMUCIL-2 [Concomitant]
  4. BISOPROL [Concomitant]
     Dosage: 2.5 MG
     Route: 048
  5. PRILOSEC [Concomitant]
     Dosage: 20 MG
     Route: 048
  6. FLOMAX [Concomitant]
     Indication: BENIGN PROSTATIC HYPERPLASIA
     Dosage: 0.4 MG
     Route: 048
  7. ZOCOR [Concomitant]
     Dosage: 20 MG
     Route: 048
  8. VITAMIN D [Concomitant]
     Route: 048
  9. PRADAXA [Suspect]
     Indication: ATRIAL FIBRILLATION
     Dosage: 150 MG
     Route: 048
     Dates: start: 20110101
  10. ASPIRIN [Concomitant]
     Dosage: 81 MG
     Route: 048
  11. FINASTERIDE [Concomitant]
     Dosage: 5 MG
     Route: 048

REACTIONS (2)
  - FALL [None]
  - CEREBRAL HAEMORRHAGE [None]
